FAERS Safety Report 4345048-0 (Version None)
Quarter: 2004Q2

REPORT INFORMATION
  Report Type: 
  Country: None (occurrence: None)
  Receive Date: 20040420
  Receipt Date: 20040408
  Transmission Date: 20050107
  Serious: Yes (Hospitalization)
  Sender: FDA-Public Use
  Company Number: K200400528

PATIENT
  Age: 72 Year
  Sex: Male

DRUGS (1)
  1. ALTACE [Suspect]
     Indication: FIBROSIS
     Dosage: 2 TABLETS, QD, ORAL
     Route: 048
     Dates: start: 20030206, end: 20040206

REACTIONS (4)
  - DYSPNOEA [None]
  - HYPERTENSION [None]
  - OEDEMA [None]
  - SUPRAVENTRICULAR TACHYCARDIA [None]
